FAERS Safety Report 8381500-9 (Version None)
Quarter: 2012Q2

REPORT INFORMATION
  Report Type: 
  Country: None (occurrence: None)
  Receive Date: 20120523
  Receipt Date: 20120518
  Transmission Date: 20120825
  Serious: Yes (Other)
  Sender: FDA-Public Use
  Company Number: US-ROCHE-1029087

PATIENT
  Sex: Male

DRUGS (1)
  1. ZELBORAF [Suspect]
     Indication: PRODUCT USED FOR UNKNOWN INDICATION

REACTIONS (7)
  - ALOPECIA [None]
  - MELANOCYTIC NAEVUS [None]
  - EYE NAEVUS [None]
  - RASH [None]
  - WEIGHT DECREASED [None]
  - HEADACHE [None]
  - RECTAL HAEMORRHAGE [None]
